FAERS Safety Report 12854196 (Version 1)
Quarter: 2016Q4

REPORT INFORMATION
  Report Type: Spontaneous
  Country: US (occurrence: US)
  Receive Date: 20161017
  Receipt Date: 20161017
  Transmission Date: 20170207
  Serious: No
  Sender: FDA-Public Use
  Company Number: US-PFIZER INC-2016481111

PATIENT
  Age: 9 Year
  Sex: Male

DRUGS (1)
  1. QUILLIVANT XR [Suspect]
     Active Substance: METHYLPHENIDATE HYDROCHLORIDE
     Dosage: UNK
     Dates: end: 20161002

REACTIONS (5)
  - Aggression [Unknown]
  - Withdrawal syndrome [Unknown]
  - Anxiety [Unknown]
  - Feeling jittery [Unknown]
  - Frustration tolerance decreased [Unknown]
